FAERS Safety Report 18513122 (Version 1)
Quarter: 2020Q4

REPORT INFORMATION
  Report Type: Spontaneous
  Country: TH (occurrence: TH)
  Receive Date: 20201117
  Receipt Date: 20201117
  Transmission Date: 20210114
  Serious: Yes (Other)
  Sender: FDA-Public Use
  Company Number: NVSC2020TH298721

PATIENT
  Age: 63 Year
  Sex: Female

DRUGS (23)
  1. CARVEDILOL. [Concomitant]
     Active Substance: CARVEDILOL
     Dosage: 25 MG, BID
     Route: 065
     Dates: start: 20201016
  2. ENALAPRIL [Concomitant]
     Active Substance: ENALAPRIL
     Dosage: 0.5 DF(20MG), BID
     Route: 065
     Dates: start: 20180820
  3. SACUBITRIL,VALSARTAN [Suspect]
     Active Substance: SACUBITRIL\VALSARTAN
     Dosage: 100 MG, BID
     Route: 065
     Dates: start: 20190128
  4. SACUBITRIL,VALSARTAN [Suspect]
     Active Substance: SACUBITRIL\VALSARTAN
     Dosage: 100 MG, BID
     Route: 065
     Dates: start: 20190318
  5. CARVEDILOL. [Concomitant]
     Active Substance: CARVEDILOL
     Dosage: 0.5 DF (25MG), BID
     Route: 065
     Dates: start: 20180820
  6. CARVEDILOL. [Concomitant]
     Active Substance: CARVEDILOL
     Dosage: 0.5 DF (25MG), BID
     Route: 065
     Dates: start: 20181119
  7. FUROSEMIDE. [Concomitant]
     Active Substance: FUROSEMIDE
     Dosage: 40 MG, QD
     Route: 065
     Dates: start: 20180716
  8. ENALAPRIL [Concomitant]
     Active Substance: ENALAPRIL
     Indication: PRODUCT USED FOR UNKNOWN INDICATION
     Dosage: 0.5 DF(5MG), BID
     Route: 065
     Dates: start: 20180521
  9. SACUBITRIL,VALSARTAN [Suspect]
     Active Substance: SACUBITRIL\VALSARTAN
     Indication: PRODUCT USED FOR UNKNOWN INDICATION
     Dosage: 50 MG, BID
     Route: 065
     Dates: start: 20180719
  10. FUROSEMIDE. [Concomitant]
     Active Substance: FUROSEMIDE
     Indication: PRODUCT USED FOR UNKNOWN INDICATION
     Dosage: 40 MG, QD
     Route: 065
     Dates: start: 20180521
  11. CARVEDILOL. [Concomitant]
     Active Substance: CARVEDILOL
     Dosage: 0.5 DF (25MG), BID
     Route: 065
     Dates: start: 20180719
  12. FUROSEMIDE. [Concomitant]
     Active Substance: FUROSEMIDE
     Dosage: 40 MG, QD
     Route: 065
     Dates: start: 20180618
  13. CARVEDILOL. [Concomitant]
     Active Substance: CARVEDILOL
     Dosage: 25 MG, BID
     Route: 065
     Dates: start: 20190318
  14. ENALAPRIL [Concomitant]
     Active Substance: ENALAPRIL
     Dosage: 5 MG, BID
     Route: 065
     Dates: start: 20180716
  15. SACUBITRIL,VALSARTAN [Suspect]
     Active Substance: SACUBITRIL\VALSARTAN
     Dosage: 100 MG, BID
     Route: 065
     Dates: start: 20181119
  16. SACUBITRIL,VALSARTAN [Suspect]
     Active Substance: SACUBITRIL\VALSARTAN
     Dosage: 200 MG, BID
     Route: 065
     Dates: start: 20201016
  17. CARVEDILOL. [Concomitant]
     Active Substance: CARVEDILOL
     Dosage: 0.5 DF (12.5MG), BID
     Route: 065
     Dates: start: 20180618
  18. CARVEDILOL. [Concomitant]
     Active Substance: CARVEDILOL
     Dosage: 25 MG, BID
     Route: 065
     Dates: start: 20190128
  19. SACUBITRIL,VALSARTAN [Suspect]
     Active Substance: SACUBITRIL\VALSARTAN
     Dosage: 100 MG, BID
     Route: 065
     Dates: start: 20181008
  20. CARVEDILOL. [Concomitant]
     Active Substance: CARVEDILOL
     Indication: PRODUCT USED FOR UNKNOWN INDICATION
     Dosage: 0.5 DF (12.5MG), BID
     Route: 065
     Dates: start: 20180521
  21. CARVEDILOL. [Concomitant]
     Active Substance: CARVEDILOL
     Dosage: 0.5 DF (25MG), BID
     Route: 065
     Dates: start: 20180716
  22. FUROSEMIDE. [Concomitant]
     Active Substance: FUROSEMIDE
     Dosage: 0.5 DF (40MG), QD
     Route: 065
     Dates: start: 20180820
  23. ENALAPRIL [Concomitant]
     Active Substance: ENALAPRIL
     Dosage: 5 MG, BID
     Route: 065
     Dates: start: 20180618

REACTIONS (2)
  - N-terminal prohormone brain natriuretic peptide increased [Recovering/Resolving]
  - Hypotension [Not Recovered/Not Resolved]

NARRATIVE: CASE EVENT DATE: 20181008
